FAERS Safety Report 10053293 (Version 1)
Quarter: 2014Q2

REPORT INFORMATION
  Report Type: Spontaneous
  Country: NO (occurrence: NO)
  Receive Date: 20140402
  Receipt Date: 20140402
  Transmission Date: 20141212
  Serious: Yes (Hospitalization)
  Sender: FDA-Public Use
  Company Number: PHHY2014NO033728

PATIENT
  Age: 64 Year
  Sex: Female

DRUGS (2)
  1. AFINITOR [Suspect]
     Indication: BREAST CANCER METASTATIC
     Dosage: 10 MG, QD
     Route: 048
     Dates: start: 20140208, end: 20140303
  2. AROMASIN [Suspect]
     Indication: BREAST CANCER METASTATIC
     Route: 048
     Dates: start: 20140208, end: 20140303

REACTIONS (3)
  - Gait disturbance [Recovering/Resolving]
  - Facial paresis [Recovering/Resolving]
  - Cerebral infarction [Recovering/Resolving]
